FAERS Safety Report 7214117-X (Version None)
Quarter: 2010Q4

REPORT INFORMATION
  Report Type: 
  Country: None (occurrence: None)
  Receive Date: 20101126
  Receipt Date: 20091006
  Transmission Date: 20110411
  Serious: Yes (Other)
  Sender: FDA-Public Use
  Company Number: WAES 0908USA05034

PATIENT
  Sex: Female

DRUGS (1)
  1. FOSAMAX [Suspect]
     Dosage: PO
     Route: 048

REACTIONS (7)
  - FRACTURE [None]
  - JAW DISORDER [None]
  - OSTEONECROSIS [None]
  - PAIN IN JAW [None]
  - TOOTH DISORDER [None]
  - TOOTHACHE [None]
  - VIITH NERVE INJURY [None]
